FAERS Safety Report 6028185-4 (Version None)
Quarter: 2009Q1

REPORT INFORMATION
  Report Type: 
  Country: None (occurrence: None)
  Receive Date: 20090106
  Receipt Date: 20090105
  Transmission Date: 20090719
  Serious: Yes (Other)
  Sender: FDA-Public Use
  Company Number: IT-JNJFOC-20090100361

PATIENT
  Age: 59 Year
  Sex: Female

DRUGS (1)
  1. OFLOXACIN [Suspect]
     Indication: CYSTITIS
     Route: 048

REACTIONS (3)
  - ANXIETY [None]
  - ASTHENIA [None]
  - BODY TEMPERATURE DECREASED [None]
